FAERS Safety Report 12977294 (Version 5)
Quarter: 2017Q3

REPORT INFORMATION
  Report Type: Spontaneous
  Country: IT (occurrence: IT)
  Receive Date: 20161128
  Receipt Date: 20170828
  Transmission Date: 20171127
  Serious: Yes (Hospitalization, Other)
  Sender: FDA-Public Use
  Company Number: IT-009507513-1611ITA011103

PATIENT
  Age: 31 Year
  Sex: Female

DRUGS (1)
  1. NEXPLANON [Suspect]
     Active Substance: ETONOGESTREL
     Indication: CONTRACEPTION
     Dosage: 1 DF, UNK
     Route: 059
     Dates: start: 20160801

REACTIONS (16)
  - Menstruation irregular [Unknown]
  - Malaise [Unknown]
  - Asthenia [Unknown]
  - Complication associated with device [Recovered/Resolved]
  - Device embolisation [Recovered/Resolved]
  - Migration of implanted drug [Recovered/Resolved]
  - Circumstance or information capable of leading to medication error [Unknown]
  - Fatigue [Unknown]
  - Amenorrhoea [Unknown]
  - Tachycardia [Unknown]
  - Metrorrhagia [Unknown]
  - Nausea [Unknown]
  - Night sweats [Unknown]
  - Agitation [Unknown]
  - Abdominal pain upper [Unknown]
  - Constipation [Unknown]

NARRATIVE: CASE EVENT DATE: 2016
